FAERS Safety Report 6121895-X (Version None)
Quarter: 2009Q1

REPORT INFORMATION
  Report Type: 
  Country: None (occurrence: None)
  Receive Date: 20090317
  Receipt Date: 20090305
  Transmission Date: 20090719
  Serious: Yes (Other)
  Sender: FDA-Public Use
  Company Number: US-PFIZER INC-2009159820

PATIENT
  Sex: Male
  Weight: 86.18 kg

DRUGS (5)
  1. XALATAN [Interacting]
     Indication: GLAUCOMA
     Dosage: 2 GTT, 1X/DAY
     Dates: start: 20080911, end: 20090101
  2. PRED FORTE [Suspect]
     Indication: CATARACT OPERATION
     Dosage: UNK
     Dates: start: 20081124
  3. BROMFENAC SODIUM [Suspect]
     Indication: CATARACT OPERATION
     Dosage: UNK
     Dates: start: 20081122
  4. PSYLLIUM HYDROPHILIC MUCILLOID [Concomitant]
     Dosage: UNK
  5. LEXAPRO [Concomitant]
     Dosage: UNK

REACTIONS (4)
  - DRUG INTERACTION [None]
  - INTRAOCULAR PRESSURE INCREASED [None]
  - IRITIS [None]
  - VISUAL ACUITY REDUCED [None]
